FAERS Safety Report 16200536 (Version 3)
Quarter: 2021Q1

REPORT INFORMATION
  Report Type: Spontaneous
  Country: DE (occurrence: DE)
  Receive Date: 20190416
  Receipt Date: 20210330
  Transmission Date: 20210419
  Serious: Yes (Hospitalization, Other)
  Sender: FDA-Public Use
  Company Number: DE-AUROBINDO-AUR-APL-2019-019616

PATIENT
  Age: 60 Year
  Sex: Male

DRUGS (17)
  1. PERAMPANEL [Suspect]
     Active Substance: PERAMPANEL
     Indication: PRODUCT USED FOR UNKNOWN INDICATION
     Dosage: 2 MILLIGRAM, ONCE A DAY, 2 MG, QD
     Route: 065
  2. PERAMPANEL [Suspect]
     Active Substance: PERAMPANEL
     Dosage: 8 MILLIGRAM, ONCE A DAY, 8 MG, QD
     Route: 065
  3. LAMOTRIGINE. [Suspect]
     Active Substance: LAMOTRIGINE
     Indication: SEIZURE
     Dosage: UNK
     Route: 065
  4. GABAPENTIN. [Suspect]
     Active Substance: GABAPENTIN
     Indication: MYOCLONIC EPILEPSY
     Dosage: UNK
     Route: 065
  5. PREGABALIN. [Suspect]
     Active Substance: PREGABALIN
     Indication: SEIZURE
     Dosage: UNK
     Route: 065
  6. LEVETIRACETAM. [Suspect]
     Active Substance: LEVETIRACETAM
     Indication: SEIZURE
     Dosage: 500 MILLIGRAM, ONCE A DAY
     Route: 065
  7. PERAMPANEL [Suspect]
     Active Substance: PERAMPANEL
     Dosage: 4 MILLIGRAM, ONCE A DAY
     Route: 065
  8. PIRACETAM [Suspect]
     Active Substance: PIRACETAM
     Indication: PRODUCT USED FOR UNKNOWN INDICATION
     Dosage: UNK
     Route: 065
  9. DRONABINOL. [Suspect]
     Active Substance: DRONABINOL
     Indication: SEIZURE
     Dosage: 20 GTT DROPS, ONCE A DAY, 20 DROP, QD
     Route: 065
  10. DRONABINOL. [Suspect]
     Active Substance: DRONABINOL
     Dosage: 30 GTT DROPS, ONCE A DAY
     Route: 065
  11. ESLICARBAZEPINE [Suspect]
     Active Substance: ESLICARBAZEPINE
     Indication: SEIZURE
     Dosage: UNK
     Route: 065
  12. LEVETIRACETAM. [Suspect]
     Active Substance: LEVETIRACETAM
     Dosage: 1500 MILLIGRAM, ONCE A DAY
     Route: 065
  13. ZONISAMIDE. [Suspect]
     Active Substance: ZONISAMIDE
     Indication: SEIZURE
     Dosage: UNK
     Route: 065
  14. CANNABIDIOL [Suspect]
     Active Substance: CANNABIDIOL
     Indication: PRODUCT USED FOR UNKNOWN INDICATION
     Dosage: WHICH WAS INCREASED OVER FOUR DAYS TO 750 MG DAILY
     Route: 065
  15. BRIVARACETAMUM [Suspect]
     Active Substance: BRIVARACETAM
     Indication: PRODUCT USED FOR UNKNOWN INDICATION
     Dosage: 150 MILLIGRAM, ONCE A DAY
     Route: 065
  16. TOPIRAMATE. [Suspect]
     Active Substance: TOPIRAMATE
     Indication: SEIZURE
     Dosage: UNK
     Route: 048
  17. CLONAZEPAM. [Suspect]
     Active Substance: CLONAZEPAM
     Indication: MYOCLONIC EPILEPSY
     Dosage: 2 MILLIGRAM, ONCE A DAY, 2 MG, QD
     Route: 065

REACTIONS (17)
  - Drug intolerance [Unknown]
  - Drug ineffective [Unknown]
  - Dysarthria [Unknown]
  - Speech disorder [Unknown]
  - Myoclonus [Unknown]
  - Dystonia [Unknown]
  - Salivary hypersecretion [Unknown]
  - Condition aggravated [Unknown]
  - Therapeutic response decreased [Unknown]
  - Cerebellar ataxia [Unknown]
  - Parkinsonism [Unknown]
  - Fatigue [Unknown]
  - Facial paresis [Unknown]
  - Vomiting [Unknown]
  - Nausea [Unknown]
  - Aggression [Unknown]
  - Rash [Unknown]
